FAERS Safety Report 15890642 (Version 1)
Quarter: 2019Q1

REPORT INFORMATION
  Report Type: Spontaneous
  Country: FR (occurrence: FR)
  Receive Date: 20190130
  Receipt Date: 20190130
  Transmission Date: 20190417
  Serious: Yes (Hospitalization)
  Sender: FDA-Public Use
  Company Number: FR-TEVA-2019-FR-1004569

PATIENT
  Age: 70 Year
  Sex: Female
  Weight: 91 kg

DRUGS (12)
  1. SPASFON [PHLOROGLUCINOL] [Suspect]
     Active Substance: PHLOROGLUCINOL
     Indication: ABDOMINAL PAIN
     Dosage: 6 DOSAGE FORMS DAILY;
     Route: 048
  2. LASILIX 40 MG, COMPRIM? S?CABLE [Suspect]
     Active Substance: FUROSEMIDE
     Indication: FLUID OVERLOAD
     Dosage: 80 MILLIGRAM DAILY;
     Route: 048
     Dates: start: 20181011, end: 20181024
  3. CONTRAMAL 50 MG, G?LULE [Suspect]
     Active Substance: TRAMADOL HYDROCHLORIDE
     Indication: ANALGESIC INTERVENTION SUPPORTIVE THERAPY
     Dosage: 200 MILLIGRAM DAILY;
     Route: 048
     Dates: end: 20181024
  4. BISOPROLOL (HEMIFUMARATE DE) [Suspect]
     Active Substance: BISOPROLOL FUMARATE
     Indication: HYPERTENSION
     Dosage: 10 MILLIGRAM DAILY;
     Route: 048
  5. RILMENIDINE [Suspect]
     Active Substance: RILMENIDINE
     Indication: HYPERTENSION
     Dosage: 1 MILLIGRAM DAILY;
     Route: 048
  6. LOVENOX [Suspect]
     Active Substance: ENOXAPARIN SODIUM
     Indication: ANTICOAGULANT THERAPY
     Dosage: 4000 IU (INTERNATIONAL UNIT) DAILY;
     Route: 058
     Dates: start: 20181011, end: 20181024
  7. PARACETAMOL [Suspect]
     Active Substance: ACETAMINOPHEN
     Indication: ANALGESIC INTERVENTION SUPPORTIVE THERAPY
     Dosage: 3 GRAM DAILY;
     Route: 048
  8. INEXIUM 40 MG, COMPRIM? GASTRO-R?SISTANT [Suspect]
     Active Substance: ESOMEPRAZOLE
     Indication: GASTROOESOPHAGEAL REFLUX DISEASE
     Dosage: 40 MILLIGRAM DAILY;
     Route: 048
  9. ALDACTONE [Suspect]
     Active Substance: SPIRONOLACTONE
     Indication: FLUID OVERLOAD
     Dosage: 50 MILLIGRAM DAILY;
     Route: 048
     Dates: start: 20181011, end: 20181024
  10. LANTUS [Suspect]
     Active Substance: INSULIN GLARGINE
     Indication: TYPE 2 DIABETES MELLITUS
     Dosage: 16 IU (INTERNATIONAL UNIT) DAILY;
     Dates: start: 20181009
  11. HUMALOG [Suspect]
     Active Substance: INSULIN LISPRO
     Indication: TYPE 2 DIABETES MELLITUS
     Dosage: 50 IU (INTERNATIONAL UNIT) DAILY;
     Dates: start: 20181009
  12. FUMAFER 66 MG, COMPRIM? PELLICUL? [Suspect]
     Active Substance: FERROUS FUMARATE
     Indication: IRON DEFICIENCY ANAEMIA
     Dosage: 132 MILLIGRAM DAILY;
     Route: 048
     Dates: end: 20181024

REACTIONS (1)
  - Immune thrombocytopenic purpura [Recovered/Resolved]

NARRATIVE: CASE EVENT DATE: 20181022
